FAERS Safety Report 7597395-7 (Version None)
Quarter: 2011Q3

REPORT INFORMATION
  Report Type: 
  Country: None (occurrence: None)
  Receive Date: 20110708
  Receipt Date: 20110624
  Transmission Date: 20111222
  Serious: Yes (Hospitalization)
  Sender: FDA-Public Use
  Company Number: PHHY2011BR56655

PATIENT
  Sex: Male

DRUGS (6)
  1. NATRILIX - SLOW RELEASE [Concomitant]
  2. EXFORGE [Suspect]
     Dosage: 160/10 MG
  3. SIMVASTATIN [Concomitant]
  4. AZUKON [Concomitant]
  5. ASPIRIN [Concomitant]
  6. METFORMIN HCL [Concomitant]

REACTIONS (4)
  - TYMPANIC MEMBRANE PERFORATION [None]
  - THROMBOSIS [None]
  - ROAD TRAFFIC ACCIDENT [None]
  - HYPOACUSIS [None]
